FAERS Safety Report 21260307 (Version 2)
Quarter: 2022Q3

REPORT INFORMATION
  Report Type: Report from Study
  Country: US (occurrence: US)
  Receive Date: 20220826
  Receipt Date: 20220830
  Transmission Date: 20221027
  Serious: No
  Sender: FDA-Public Use
  Company Number: US-NOVARTISTESTPH-NVSC2022US192161

PATIENT
  Age: 51 Year
  Sex: Male

DRUGS (2)
  1. COSENTYX [Suspect]
     Active Substance: SECUKINUMAB
     Indication: Psoriasis
     Dosage: UNK UNK, QW, (Q WEEK FOR 4 WEEKS)
     Route: 058
     Dates: start: 20220721
  2. COSENTYX [Suspect]
     Active Substance: SECUKINUMAB
     Dosage: UNK, QMO, (Q FOUR WEEKS)
     Route: 058

REACTIONS (3)
  - Psoriasis [Unknown]
  - Skin discolouration [Unknown]
  - Scab [Unknown]

NARRATIVE: CASE EVENT DATE: 20220825
